FAERS Safety Report 10264997 (Version 1)
Quarter: 2014Q2

REPORT INFORMATION
  Report Type: Spontaneous
  Country: US (occurrence: US)
  Receive Date: 20140627
  Receipt Date: 20140627
  Transmission Date: 20141212
  Serious: No
  Sender: FDA-Public Use
  Company Number: US-PFIZER INC-2014174084

PATIENT
  Age: 77 Year
  Sex: Female
  Weight: 64.9 kg

DRUGS (1)
  1. PREMARIN [Suspect]
     Indication: VAGINAL INFECTION
     Dosage: 0.5 G, UNK
     Route: 067
     Dates: start: 20130413

REACTIONS (1)
  - Drug ineffective for unapproved indication [Not Recovered/Not Resolved]
